FAERS Safety Report 23278093 (Version 1)
Quarter: 2023Q4

REPORT INFORMATION
  Report Type: Spontaneous
  Country: VN (occurrence: VN)
  Receive Date: 20231208
  Receipt Date: 20231208
  Transmission Date: 20240109
  Serious: Yes (Other)
  Sender: FDA-Public Use
  Company Number: VN-002147023-NVSC2023VN246131

PATIENT
  Age: 60 Year
  Sex: Female

DRUGS (3)
  1. FULVESTRANT [Suspect]
     Active Substance: FULVESTRANT
     Dosage: 500 MG, QMO,(WITH AN ADDITIONAL 500 MG DOSE GIVEN TWO WEEKS AFTER THE INITIAL DOSE)
     Route: 030
  2. FULVESTRANT [Suspect]
     Active Substance: FULVESTRANT
     Indication: Breast cancer metastatic
     Dosage: UNK, 250 MG/5 ML
     Route: 065
     Dates: start: 20231110
  3. RIBOCICLIB [Suspect]
     Active Substance: RIBOCICLIB
     Indication: Breast cancer metastatic
     Dosage: 600 MG, QD
     Route: 048
     Dates: start: 20231110

REACTIONS (4)
  - Thrombocytopenia [Not Recovered/Not Resolved]
  - Granulocytopenia [Unknown]
  - Pyrexia [Unknown]
  - Fatigue [Unknown]
